FAERS Safety Report 25036907 (Version 1)
Quarter: 2025Q1

REPORT INFORMATION
  Report Type: Spontaneous
  Country: SE (occurrence: SE)
  Receive Date: 20250304
  Receipt Date: 20250304
  Transmission Date: 20250408
  Serious: Yes (Disabling, Other)
  Sender: MERCK SHARP & DOHME LLC
  Company Number: None

PATIENT
  Age: 75 Year
  Sex: Female

DRUGS (17)
  1. KEYTRUDA [Suspect]
     Active Substance: PEMBROLIZUMAB
     Indication: Lung adenocarcinoma
     Dosage: 200MG EVERY 3 WEEKS
     Route: 042
     Dates: start: 20210205, end: 20240613
  2. KEYTRUDA [Suspect]
     Active Substance: PEMBROLIZUMAB
     Indication: Lung adenocarcinoma
     Dosage: 200MG EVERY 3 WEEKS
     Route: 042
     Dates: start: 20210205, end: 20240613
  3. KEYTRUDA [Suspect]
     Active Substance: PEMBROLIZUMAB
     Indication: Lung adenocarcinoma
     Dosage: 200MG EVERY 3 WEEKS
     Route: 042
     Dates: start: 20210205, end: 20240613
  4. KEYTRUDA [Suspect]
     Active Substance: PEMBROLIZUMAB
     Indication: Lung adenocarcinoma
     Dosage: 200MG EVERY 3 WEEKS
     Route: 042
     Dates: start: 20210205, end: 20240613
  5. KEYTRUDA [Suspect]
     Active Substance: PEMBROLIZUMAB
     Indication: Lung adenocarcinoma
     Dosage: 200MG EVERY 3 WEEKS
     Route: 042
     Dates: start: 20210205, end: 20240613
  6. KEYTRUDA [Suspect]
     Active Substance: PEMBROLIZUMAB
     Indication: Lung adenocarcinoma
     Dosage: 200MG EVERY 3 WEEKS
     Route: 042
     Dates: start: 20210205, end: 20240613
  7. KEYTRUDA [Suspect]
     Active Substance: PEMBROLIZUMAB
     Indication: Lung adenocarcinoma
     Dosage: 200MG EVERY 3 WEEKS
     Route: 042
     Dates: start: 20210205, end: 20240613
  8. KEYTRUDA [Suspect]
     Active Substance: PEMBROLIZUMAB
     Indication: Lung adenocarcinoma
     Dosage: 200MG EVERY 3 WEEKS
     Route: 042
     Dates: start: 20210205, end: 20240613
  9. KEYTRUDA [Suspect]
     Active Substance: PEMBROLIZUMAB
     Indication: Lung adenocarcinoma
     Dosage: 200MG EVERY 3 WEEKS
     Route: 042
     Dates: start: 20210205, end: 20240613
  10. KEYTRUDA [Suspect]
     Active Substance: PEMBROLIZUMAB
     Indication: Lung adenocarcinoma
     Dosage: 200MG EVERY 3 WEEKS
     Route: 042
     Dates: start: 20210205, end: 20240613
  11. KEYTRUDA [Suspect]
     Active Substance: PEMBROLIZUMAB
     Indication: Lung adenocarcinoma
     Dosage: 200MG EVERY 3 WEEKS
     Route: 042
     Dates: start: 20210205, end: 20240613
  12. KEYTRUDA [Suspect]
     Active Substance: PEMBROLIZUMAB
     Indication: Lung adenocarcinoma
     Dosage: 200MG EVERY 3 WEEKS
     Route: 042
     Dates: start: 20210205, end: 20240613
  13. KEYTRUDA [Suspect]
     Active Substance: PEMBROLIZUMAB
     Indication: Lung adenocarcinoma
     Dosage: 200MG EVERY 3 WEEKS
     Route: 042
     Dates: start: 20210205, end: 20240613
  14. KEYTRUDA [Suspect]
     Active Substance: PEMBROLIZUMAB
     Indication: Lung adenocarcinoma
     Dosage: 200MG EVERY 3 WEEKS
     Route: 042
     Dates: start: 20210205, end: 20240613
  15. KEYTRUDA [Suspect]
     Active Substance: PEMBROLIZUMAB
     Indication: Lung adenocarcinoma
     Dosage: 200MG EVERY 3 WEEKS
     Route: 042
     Dates: start: 20210205, end: 20240613
  16. KEYTRUDA [Suspect]
     Active Substance: PEMBROLIZUMAB
     Indication: Lung adenocarcinoma
     Dosage: 200MG EVERY 3 WEEKS
     Route: 042
     Dates: start: 20210205, end: 20240613
  17. KEYTRUDA [Suspect]
     Active Substance: PEMBROLIZUMAB
     Indication: Lung adenocarcinoma
     Dosage: 200MG EVERY 3 WEEKS
     Route: 042
     Dates: start: 20210205, end: 20240613

REACTIONS (1)
  - Pulmonary hypertension [Not Recovered/Not Resolved]

NARRATIVE: CASE EVENT DATE: 20240601
